FAERS Safety Report 7819052 (Version 2)
Quarter: 2013Q4

REPORT INFORMATION
  Report Type: Spontaneous
  Country: US (occurrence: US)
  Receive Date: 20110218
  Receipt Date: 20131105
  Transmission Date: 20140711
  Serious: Yes (Other)
  Sender: FDA-Public Use
  Company Number: US-ASTRAZENECA-2011SE07975

PATIENT
  Age: 60 Year
  Sex: Male
  Weight: 90.7 kg

DRUGS (7)
  1. SYMBICORT [Suspect]
     Indication: CHRONIC OBSTRUCTIVE PULMONARY DISEASE
     Dosage: 320/9 MCG, BID
     Route: 055
     Dates: start: 2010
  2. GABAPENTIN [Concomitant]
     Indication: NERVE INJURY
     Route: 048
  3. TRAZEDONE [Concomitant]
     Indication: SLEEP DISORDER
     Route: 048
  4. PROAIR [Concomitant]
     Indication: CHRONIC OBSTRUCTIVE PULMONARY DISEASE
     Dosage: NR PRN
     Route: 055
  5. ALBUTEROL NEBULIZER [Concomitant]
     Indication: CHRONIC OBSTRUCTIVE PULMONARY DISEASE
     Dosage: 2.5MG/3ML PRN
     Route: 055
  6. ANTIBIOTICS [Concomitant]
  7. STEROIDS [Concomitant]

REACTIONS (11)
  - Cerebrovascular accident [Unknown]
  - Wheezing [Not Recovered/Not Resolved]
  - Lung infection [Unknown]
  - Productive cough [Unknown]
  - Bronchitis chronic [Recovering/Resolving]
  - Visual acuity reduced [Unknown]
  - Nerve compression [Unknown]
  - Hypoaesthesia [Unknown]
  - Sinus disorder [Recovering/Resolving]
  - Blood pressure increased [Unknown]
  - Drug dose omission [Recovered/Resolved]
